FAERS Safety Report 16034353 (Version 1)
Quarter: 2019Q1

REPORT INFORMATION
  Report Type: Spontaneous
  Country: US (occurrence: US)
  Receive Date: 20190305
  Receipt Date: 20190305
  Transmission Date: 20190418
  Serious: No
  Sender: FDA-Public Use
  Company Number: US-IMPAX LABORATORIES, LLC-2018-IPXL-02877

PATIENT
  Age: 70 Year
  Sex: Male

DRUGS (5)
  1. RYTARY [Suspect]
     Active Substance: CARBIDOPA\LEVODOPA
     Dosage: 23.75/ 95 MG, 2 CAPSULES THREE TIMES A DAY AND 3 CAPSULES AT NIGHT
     Route: 065
     Dates: start: 201808, end: 201808
  2. RYTARY [Suspect]
     Active Substance: CARBIDOPA\LEVODOPA
     Dosage: 61.25/245 MG, 10 CAPSULES DAILY (3 CAP AT MORNING, 2 CAP AT 11 AM, 2 CAP AT 4 PM AND 3 CAP AT NIGHT)
     Route: 065
     Dates: start: 20180831
  3. MIDODRINE [Concomitant]
     Active Substance: MIDODRINE
     Indication: ORTHOSTATIC HYPERTENSION
     Dosage: 2.5 MG, 1 TABLET THREE TIMES A DAY
     Route: 065
  4. ALPRAZOLAM. [Concomitant]
     Active Substance: ALPRAZOLAM
     Indication: ANXIETY
     Dosage: 0.5 MG, 1 TABLET AT BEDTIME
     Route: 065
  5. RYTARY [Suspect]
     Active Substance: CARBIDOPA\LEVODOPA
     Indication: PARKINSON^S DISEASE
     Dosage: 23.75/ 95 MG, TWO CAPSULES FOUR TIMES A DAY
     Route: 065
     Dates: start: 201807, end: 2018

REACTIONS (1)
  - Sleep disorder [Unknown]

NARRATIVE: CASE EVENT DATE: 2018
